FAERS Safety Report 20378925 (Version 5)
Quarter: 2022Q3

REPORT INFORMATION
  Report Type: Report from Study
  Country: AR (occurrence: AR)
  Receive Date: 20220126
  Receipt Date: 20220711
  Transmission Date: 20221027
  Serious: Yes (Hospitalization)
  Sender: FDA-Public Use
  Company Number: AR-NOVARTISPH-NVSC2021AR301520

PATIENT
  Age: 75 Year
  Sex: Female

DRUGS (3)
  1. KISQALI [Suspect]
     Active Substance: RIBOCICLIB
     Indication: Breast cancer metastatic
     Dosage: 600 MG, QD
     Route: 048
     Dates: start: 20211228
  2. KISQALI [Suspect]
     Active Substance: RIBOCICLIB
     Dosage: 400 MG, QD
     Route: 048
     Dates: start: 20211228
  3. HYDROCHLOROTHIAZIDE\LOSARTAN POTASSIUM [Concomitant]
     Active Substance: HYDROCHLOROTHIAZIDE\LOSARTAN POTASSIUM
     Indication: Product used for unknown indication
     Dosage: UNK, QD (1 OF 50MG/12.5MG)
     Route: 065

REACTIONS (11)
  - Pneumonia [Unknown]
  - Decreased immune responsiveness [Unknown]
  - Pancytopenia [Recovered/Resolved]
  - Confusional state [Recovered/Resolved]
  - General physical health deterioration [Recovered/Resolved]
  - Urinary tract infection [Recovered/Resolved]
  - Neutropenia [Recovered/Resolved]
  - Leukocytosis [Unknown]
  - Dermal cyst [Unknown]
  - Dysphonia [Recovered/Resolved]
  - Influenza [Unknown]

NARRATIVE: CASE EVENT DATE: 20220119
